FAERS Safety Report 9195920 (Version 1)
Quarter: 2013Q1

REPORT INFORMATION
  Report Type: Spontaneous
  Country: US (occurrence: None)
  Receive Date: 20120703
  Receipt Date: 20120703
  Transmission Date: 20140127
  Serious: No
  Sender: FDA-Public Use
  Company Number: PHEH2012US007990

PATIENT
  Age: 67 Year
  Sex: Female

DRUGS (8)
  1. GILENYA [Suspect]
     Indication: MULTIPLE SCLEROSIS
     Route: 048
     Dates: start: 20120316
  2. SERTRALINE (SERTRALINE [Concomitant]
  3. LEXAPRO (ESCITALOPRAM OXALATE) [Concomitant]
  4. AMBIEN (ZOLPIDEM TARTRATE) [Concomitant]
  5. GABAPENTIN (GABAPENTIN) [Concomitant]
  6. SINGULAIR [Concomitant]
  7. SIMVASTATIN (SIMVASTATIN) [Concomitant]
  8. ENABLEX (DARIFENACIN HYDROBROMIDE) [Concomitant]

REACTIONS (2)
  - Rash [None]
  - Headache [None]
